FAERS Safety Report 13266361 (Version 1)
Quarter: 2017Q1

REPORT INFORMATION
  Report Type: Spontaneous
  Country: RO (occurrence: RO)
  Receive Date: 20170223
  Receipt Date: 20170223
  Transmission Date: 20170428
  Serious: Yes (Other)
  Sender: FDA-Public Use
  Company Number: RO-GLAXOSMITHKLINE-RO2017GSK025886

PATIENT
  Age: 62 Year
  Sex: Female

DRUGS (2)
  1. ACYCLOVIR. [Suspect]
     Active Substance: ACYCLOVIR
     Indication: HERPES ZOSTER
     Dosage: UNK, TID
     Route: 061
  2. ACYCLOVIR. [Concomitant]
     Active Substance: ACYCLOVIR
     Indication: HERPES ZOSTER
     Dosage: 2 G, QD
     Route: 048

REACTIONS (5)
  - Dermatitis [Unknown]
  - Pruritus [Recovering/Resolving]
  - Skin plaque [Recovering/Resolving]
  - Erythema [Unknown]
  - Dermatitis contact [Recovering/Resolving]
